FAERS Safety Report 19024577 (Version 2)
Quarter: 2021Q2

REPORT INFORMATION
  Report Type: Report from Study
  Country: US (occurrence: US)
  Receive Date: 20210318
  Receipt Date: 20210502
  Transmission Date: 20210717
  Serious: No
  Sender: FDA-Public Use
  Company Number: NVSC2021US053367

PATIENT
  Age: 43 Year
  Sex: Female
  Weight: 70.31 kg

DRUGS (1)
  1. KESIMPTA [Suspect]
     Active Substance: OFATUMUMAB
     Indication: PRODUCT USED FOR UNKNOWN INDICATION
     Dosage: 20 MG, QMO (BENEATH THE SKIN,USUALLY VIA INJECTION)
     Route: 058
     Dates: start: 20201225

REACTIONS (7)
  - Fatigue [Unknown]
  - Hypersomnia [Unknown]
  - Ear haemorrhage [Unknown]
  - Heart rate irregular [Unknown]
  - Somnolence [Unknown]
  - Oxygen saturation decreased [Unknown]
  - Scratch [Unknown]

NARRATIVE: CASE EVENT DATE: 20210306
